FAERS Safety Report 5238656-6 (Version None)
Quarter: 2007Q1

REPORT INFORMATION
  Report Type: 
  Country: None (occurrence: None)
  Receive Date: 20070214
  Receipt Date: 20070214
  Transmission Date: 20070707
  Serious: Yes (Hospitalization)
  Sender: FDA-Public Use
  Company Number: None

PATIENT
  Sex: Male
  Weight: 93.441 kg

DRUGS (24)
  1. BUMETANIDE [Suspect]
     Dosage: 2 MG DAILY
  2. CLONIDINE [Suspect]
     Dosage: 0.2 MG/24 H PATCH
  3. FELODIPINE [Suspect]
     Dosage: 2.5 MG DAILY
  4. FLUOXETINE [Suspect]
     Dosage: 10 MG DAILY
  5. LABETALOL [Suspect]
     Dosage: 400 MG BID
  6. SPIRONOLACTONE [Suspect]
  7. ACCU-CHEK COMFORT CV (GLUCOSE) TEST STRIP [Concomitant]
  8. ACETAMINOPHEN [Concomitant]
  9. ALBUTEROL/IPRATROP [Concomitant]
  10. ALCOHOL PREP PAD [Concomitant]
  11. BUMETANIDE [Concomitant]
  12. CLONIDINE [Concomitant]
  13. FELODIPINE [Concomitant]
  14. FLUOXETINE HCL [Concomitant]
  15. NPH INSULIN [Concomitant]
  16. INSULIN SYRG [Concomitant]
  17. LABETALOL HCL [Concomitant]
  18. LANCET, TECHLITE [Concomitant]
  19. LOVASTATIN [Concomitant]
  20. MOMETASONE FUROATE [Concomitant]
  21. RANITIDINE [Concomitant]
  22. SPIRONOLACTONE [Concomitant]
  23. TABLET CUTTER [Concomitant]
  24. TEMAZEPAM [Concomitant]

REACTIONS (3)
  - ASTHENIA [None]
  - BALANCE DISORDER [None]
  - DIZZINESS [None]
